FAERS Safety Report 5237231-7 (Version None)
Quarter: 2007Q1

REPORT INFORMATION
  Report Type: 
  Country: None (occurrence: None)
  Receive Date: 20070213
  Receipt Date: 20070207
  Transmission Date: 20070707
  Serious: Yes (Death)
  Sender: FDA-Public Use
  Company Number: JP-MERCK-0702USA01294

PATIENT
  Age: 71 Year
  Sex: Male
  Weight: 52 kg

DRUGS (10)
  1. PRIMAXIN [Suspect]
     Indication: PNEUMONIA ASPIRATION
     Route: 042
     Dates: start: 20070119, end: 20070125
  2. SULPERAZON [Suspect]
     Indication: PNEUMONIA ASPIRATION
     Route: 042
     Dates: start: 20070118, end: 20070119
  3. LACTULOSE [Concomitant]
     Indication: HEPATIC CIRRHOSIS
     Route: 048
     Dates: start: 20070104, end: 20070119
  4. DIAZEPAM [Concomitant]
     Indication: ALCOHOL WITHDRAWAL SYNDROME
     Route: 048
     Dates: start: 20070104, end: 20070113
  5. TAKEPRON [Concomitant]
     Indication: GASTRIC HAEMORRHAGE
     Route: 048
     Dates: start: 20070104, end: 20070124
  6. URSO [Concomitant]
     Indication: CHOLELITHIASIS
     Route: 048
     Dates: start: 20070104, end: 20070124
  7. FUROSEMIDE [Concomitant]
     Indication: HEPATIC CIRRHOSIS
     Route: 048
     Dates: start: 20070104, end: 20070124
  8. SPIRONOLACTONE [Concomitant]
     Indication: HEPATIC CIRRHOSIS
     Route: 048
     Dates: start: 20070104, end: 20070124
  9. ALLOID G [Concomitant]
     Indication: GASTRIC HAEMORRHAGE
     Route: 048
     Dates: start: 20070113, end: 20070119
  10. MUCOSTA [Concomitant]
     Indication: GASTRIC HAEMORRHAGE
     Route: 048
     Dates: start: 20070113, end: 20070124

REACTIONS (2)
  - CROSSMATCH INCOMPATIBLE [None]
  - OESOPHAGEAL VARICES HAEMORRHAGE [None]
